FAERS Safety Report 6956911-6 (Version None)
Quarter: 2010Q3

REPORT INFORMATION
  Report Type: 
  Country: None (occurrence: None)
  Receive Date: 20100826
  Receipt Date: 20100819
  Transmission Date: 20110219
  Serious: Yes (Hospitalization)
  Sender: FDA-Public Use
  Company Number: IDA-00415

PATIENT
  Age: 10 Month
  Sex: Female

DRUGS (1)
  1. PROPRANOLOL HCL [Suspect]
     Indication: HAEMANGIOMA
     Dosage: 1MG/KG/DAY TITRATING TO 2MG/KG/DAY, 3 TIMES DAILY, ORAL
     Route: 048

REACTIONS (5)
  - GAIT DISTURBANCE [None]
  - HYPERVENTILATION [None]
  - HYPOGLYCAEMIA [None]
  - PALLOR [None]
  - RESPIRATORY SYNCYTIAL VIRUS TEST POSITIVE [None]
